FAERS Safety Report 5265708-7 (Version None)
Quarter: 2007Q1

REPORT INFORMATION
  Report Type: 
  Country: None (occurrence: None)
  Receive Date: 20061213
  Receipt Date: 20030925
  Transmission Date: 20070707
  Serious: Yes (Other)
  Sender: FDA-Public Use
  Company Number: 2003UW12256

PATIENT
  Age: 64 Year
  Sex: Male

DRUGS (1)
  1. IRESSA [Suspect]
     Dosage: 250 MG PO
     Route: 048

REACTIONS (3)
  - PRURITUS [None]
  - PULMONARY CONGESTION [None]
  - RASH [None]
